FAERS Safety Report 16406772 (Version 2)
Quarter: 2019Q3

REPORT INFORMATION
  Report Type: Spontaneous
  Country: ES (occurrence: ES)
  Receive Date: 20190607
  Receipt Date: 20190703
  Transmission Date: 20191004
  Serious: Yes (Death, Other)
  Sender: FDA-Public Use
  Company Number: ES-009507513-1906ESP002837

PATIENT
  Age: 61 Year
  Sex: Female

DRUGS (3)
  1. FORTECORTIN [Concomitant]
     Active Substance: DEXAMETHASONE
     Dosage: 40 MILLIGRAM ENDOVENOUS
     Dates: start: 201802, end: 201806
  2. KEYTRUDA [Suspect]
     Active Substance: PEMBROLIZUMAB
     Indication: NON-SMALL CELL LUNG CANCER
     Dosage: 200 MILLIGRAM, EVERY 3 WEEKS
     Dates: start: 20171002, end: 20180102
  3. FORTECORTIN [Concomitant]
     Active Substance: DEXAMETHASONE
     Dosage: 40 MILLIGRAM
     Route: 042
     Dates: start: 201802, end: 201806

REACTIONS (5)
  - Immune-mediated adverse reaction [Not Recovered/Not Resolved]
  - Hyperthyroidism [Unknown]
  - Silent thyroiditis [Not Recovered/Not Resolved]
  - Primary hypothyroidism [Unknown]
  - Malignant neoplasm progression [Fatal]

NARRATIVE: CASE EVENT DATE: 201711
